FAERS Safety Report 7368808-0 (Version None)
Quarter: 2011Q1

REPORT INFORMATION
  Report Type: 
  Country: None (occurrence: None)
  Receive Date: 20110304
  Receipt Date: 20101029
  Transmission Date: 20110831
  Serious: Yes (Death, Life-Threatening, Hospitalization, Disabling)
  Sender: FDA-Public Use
  Company Number: CLOF-10535

PATIENT
  Age: 77 Year
  Sex: Male
  Weight: 97.1 kg

DRUGS (10)
  1. CYTARABINE [Suspect]
     Indication: ACUTE MYELOID LEUKAEMIA
     Dosage: 1000 MG/M2, QDX5, INTRAVANEOUS
     Route: 042
     Dates: start: 20070503, end: 20070507
  2. COREG [Concomitant]
  3. PREVACID [Concomitant]
  4. POTASSIUM CHLORIDE [Concomitant]
  5. CLOFARABINE [Suspect]
     Indication: ACUTE MYELOID LEUKAEMIA
     Dosage: 40 MG/M2, QDX5, INTRAVENOUS
     Route: 042
     Dates: start: 20070503, end: 20070507
  6. ENALAPRIL MALEATE [Concomitant]
  7. PROSCAR [Concomitant]
  8. FUROSEMIDE [Concomitant]
  9. CRESTOR [Concomitant]
  10. FLONASE [Concomitant]

REACTIONS (37)
  - DIALYSIS [None]
  - TREMOR [None]
  - PANCYTOPENIA [None]
  - ATRIAL FIBRILLATION [None]
  - SUBARACHNOID HAEMORRHAGE [None]
  - BLOOD BILIRUBIN INCREASED [None]
  - ALANINE AMINOTRANSFERASE INCREASED [None]
  - PAIN IN EXTREMITY [None]
  - WEIGHT INCREASED [None]
  - SUBDURAL HAEMATOMA [None]
  - ASPARTATE AMINOTRANSFERASE INCREASED [None]
  - SKIN EXFOLIATION [None]
  - OCULAR ICTERUS [None]
  - RENAL FAILURE ACUTE [None]
  - HYPOTENSION [None]
  - TACHYCARDIA [None]
  - MENTAL STATUS CHANGES [None]
  - TRANSAMINASES INCREASED [None]
  - DIARRHOEA [None]
  - OEDEMA PERIPHERAL [None]
  - URINARY RETENTION [None]
  - PNEUMONIA [None]
  - BLOOD CULTURE POSITIVE [None]
  - ENTEROCOCCAL INFECTION [None]
  - COAGULOPATHY [None]
  - ENCEPHALOPATHY [None]
  - ERYTHROMELALGIA [None]
  - SKIN DISORDER [None]
  - UNRESPONSIVE TO STIMULI [None]
  - FLUSHING [None]
  - MYALGIA [None]
  - HAEMATOMA [None]
  - MULTI-ORGAN FAILURE [None]
  - FLUID OVERLOAD [None]
  - DECUBITUS ULCER [None]
  - SKIN LESION [None]
  - FUNGAL INFECTION [None]
